FAERS Safety Report 9671469 (Version 1)
Quarter: 2013Q4

REPORT INFORMATION
  Report Type: Spontaneous
  Country: IT (occurrence: IT)
  Receive Date: 20131106
  Receipt Date: 20131106
  Transmission Date: 20140711
  Serious: Yes (Hospitalization, Other)
  Sender: FDA-Public Use
  Company Number: IT-ROXANE LABORATORIES, INC.-2013-RO-01776RO

PATIENT
  Age: 54 Year
  Sex: Male

DRUGS (5)
  1. PREDNISONE [Suspect]
     Indication: LEPROSY
     Dosage: 75 MG
     Route: 048
  2. RIFAMPICIN [Suspect]
     Indication: LEPROSY
  3. MINOCYCLINE [Suspect]
     Indication: LEPROSY
  4. MOXIFLOXACIN [Suspect]
     Indication: LEPROSY
  5. THALIDOMIDE [Suspect]
     Indication: LEPROSY

REACTIONS (3)
  - Cellulitis [Recovered/Resolved]
  - Nocardiosis [Recovered/Resolved]
  - Diabetes mellitus [Unknown]
